FAERS Safety Report 9989221 (Version 1)
Quarter: 2014Q1

REPORT INFORMATION
  Report Type: Spontaneous
  Country: US (occurrence: US)
  Receive Date: 20140310
  Receipt Date: 20140310
  Transmission Date: 20141002
  Serious: Yes (Hospitalization)
  Sender: FDA-Public Use
  Company Number: US-BAYER-2014-034260

PATIENT
  Age: 35 Year
  Sex: Female

DRUGS (6)
  1. YASMIN [Suspect]
  2. SYNTHROID [Concomitant]
     Dosage: 150 MG, UNK
  3. SENNATAB [Concomitant]
  4. FERROUS SULFATE [Concomitant]
  5. MIRALAX [Concomitant]
  6. PROVIGIL [Concomitant]
     Dosage: 200 MG, UNK

REACTIONS (1)
  - Pulmonary embolism [None]
